FAERS Safety Report 6102802-2 (Version None)
Quarter: 2009Q1

REPORT INFORMATION
  Report Type: 
  Country: None (occurrence: None)
  Receive Date: 20090304
  Receipt Date: 20090302
  Transmission Date: 20090719
  Serious: Yes (Death, Hospitalization)
  Sender: FDA-Public Use
  Company Number: JP-B.I. PHARMACEUTICALS,INC./RIDGEFIELD-2008-BP-06229NB

PATIENT
  Sex: Male
  Weight: 52 kg

DRUGS (6)
  1. MICARDIS [Suspect]
     Indication: HYPERTENSION
     Dosage: 20MG
     Route: 048
     Dates: start: 20070316, end: 20071216
  2. PANALDINE [Suspect]
     Dosage: 200MG
  3. ASPIRIN [Suspect]
     Dosage: 100MG
  4. TAKEPRON [Concomitant]
     Indication: PROPHYLAXIS
     Dosage: 15MG
     Route: 048
  5. LASIX [Concomitant]
     Dosage: 80MG
     Route: 048
  6. PANTOSIN [Concomitant]
     Dosage: 2G
     Route: 048

REACTIONS (2)
  - CARDIAC FAILURE [None]
  - CEREBRAL HAEMORRHAGE [None]
